FAERS Safety Report 11385962 (Version 5)
Quarter: 2016Q1

REPORT INFORMATION
  Report Type: Report from Study
  Country: US (occurrence: US)
  Receive Date: 20150817
  Receipt Date: 20160203
  Transmission Date: 20160525
  Serious: Yes (Hospitalization)
  Sender: FDA-Public Use
  Company Number: US-ROCHE-1618011

PATIENT
  Age: 76 Year
  Sex: Female
  Weight: 92.8 kg

DRUGS (10)
  1. LEUCOVORIN. [Suspect]
     Active Substance: LEUCOVORIN
     Route: 042
     Dates: start: 20150818
  2. 5-FLUOROURACIL [Suspect]
     Active Substance: FLUOROURACIL
     Indication: COLORECTAL CANCER METASTATIC
     Dosage: LAST DOSE PRIOR TO SAE 07/JUL/2015
     Route: 040
     Dates: start: 20140805, end: 20150729
  3. LEUCOVORIN. [Suspect]
     Active Substance: LEUCOVORIN
     Indication: COLORECTAL CANCER METASTATIC
     Dosage: LAST DOSE PRIOR TO SAE 7/JUL/2015
     Route: 042
     Dates: start: 20150505, end: 20150729
  4. 5-FLUOROURACIL [Suspect]
     Active Substance: FLUOROURACIL
     Dosage: LAST DOSE PRIOR TO SAE 07/JUL/2015
     Route: 042
     Dates: start: 20140402, end: 20150729
  5. IRINOTECAN [Suspect]
     Active Substance: IRINOTECAN
     Indication: COLORECTAL CANCER METASTATIC
     Dosage: LAST DOSE PRIOR TO SAE 22/JUL/2014
     Route: 042
     Dates: start: 20140402
  6. LEVOLEUCOVORIN. [Suspect]
     Active Substance: LEVOLEUCOVORIN
     Indication: COLORECTAL CANCER METASTATIC
     Dosage: LAST DOSE PRIOR TO SAE 21/APR/2015
     Route: 042
     Dates: start: 20140402
  7. 5-FLUOROURACIL [Suspect]
     Active Substance: FLUOROURACIL
     Route: 042
     Dates: start: 20150818
  8. OXALIPLATIN. [Suspect]
     Active Substance: OXALIPLATIN
     Indication: COLORECTAL CANCER METASTATIC
     Dosage: LAST DOSE PRIOR TO SAE 22/JUL/2014
     Route: 042
     Dates: start: 20140402
  9. BEVACIZUMAB [Suspect]
     Active Substance: BEVACIZUMAB
     Indication: COLORECTAL CANCER METASTATIC
     Dosage: LAST DOSE OF BEVACIZUMAB 07/JUL/2015
     Route: 042
     Dates: start: 20140402, end: 20150707
  10. 5-FLUOROURACIL [Suspect]
     Active Substance: FLUOROURACIL
     Route: 040
     Dates: start: 20150818

REACTIONS (1)
  - Soft tissue necrosis [Recovered/Resolved]

NARRATIVE: CASE EVENT DATE: 20150729
